FAERS Safety Report 19998768 (Version 2)
Quarter: 2021Q4

REPORT INFORMATION
  Report Type: Spontaneous
  Country: US (occurrence: US)
  Receive Date: 20211027
  Receipt Date: 20211026
  Transmission Date: 20220303
  Serious: No
  Sender: FDA-Public Use
  Company Number: US-ROCHE-2847344

PATIENT
  Sex: Female

DRUGS (3)
  1. COTELLIC [Suspect]
     Active Substance: COBIMETINIB
     Indication: Product used for unknown indication
     Dosage: 40MG MONDAY, WEDNESDAY AND FRIDAY, 20MG TUESDAY, THURSDAY, SATURDAY AND SUNDAY 21 DAYS OFF FOR 7 DAY
     Route: 048
     Dates: start: 202104
  2. COTELLIC [Suspect]
     Active Substance: COBIMETINIB
     Route: 048
     Dates: start: 202104
  3. ZELBORAF [Suspect]
     Active Substance: VEMURAFENIB
     Indication: Product used for unknown indication
     Route: 048
     Dates: start: 20210403

REACTIONS (5)
  - Blood pressure increased [Unknown]
  - Acne [Unknown]
  - Photosensitivity reaction [Unknown]
  - Rash [Unknown]
  - Visual impairment [Unknown]
